FAERS Safety Report 10890092 (Version 1)
Quarter: 2015Q1

REPORT INFORMATION
  Report Type: Report from Study
  Country: DE (occurrence: DE)
  Receive Date: 20150305
  Receipt Date: 20150305
  Transmission Date: 20150721
  Serious: Yes (Other)
  Sender: FDA-Public Use
  Company Number: DE-ROCHE-1544726

PATIENT
  Age: 51 Year
  Sex: Female

DRUGS (2)
  1. HERCEPTIN [Suspect]
     Active Substance: TRASTUZUMAB
     Indication: BREAST CANCER
     Route: 065
  2. MISTLETOE [Concomitant]

REACTIONS (13)
  - Weight increased [Unknown]
  - Seizure [Unknown]
  - Ageusia [Unknown]
  - Polyneuropathy [Not Recovered/Not Resolved]
  - Diarrhoea [Unknown]
  - Alopecia [Unknown]
  - Incorrect drug administration rate [Unknown]
  - Pain [Not Recovered/Not Resolved]
  - Cardiac disorder [Not Recovered/Not Resolved]
  - Asthenia [Unknown]
  - Lung disorder [Unknown]
  - Hot flush [Unknown]
  - Candida infection [Unknown]
